FAERS Safety Report 18918470 (Version 1)
Quarter: 2021Q1

REPORT INFORMATION
  Report Type: Spontaneous
  Country: FR (occurrence: FR)
  Receive Date: 20210220
  Receipt Date: 20210220
  Transmission Date: 20210420
  Serious: Yes (Hospitalization, Other)
  Sender: FDA-Public Use
  Company Number: FR-DRREDDYS-USA/FRA/21/0132217

PATIENT
  Sex: Male

DRUGS (6)
  1. EPTACOG?ALFA [RFVIIA] [Concomitant]
     Indication: MONOCLONAL GAMMOPATHY
  2. BORTEZOMIB. [Suspect]
     Active Substance: BORTEZOMIB
     Indication: MONOCLONAL GAMMOPATHY
  3. THALIDOMIDE [Suspect]
     Active Substance: THALIDOMIDE
     Indication: MONOCLONAL GAMMOPATHY
  4. AZATHIOPRINE. [Suspect]
     Active Substance: AZATHIOPRINE
     Indication: MONOCLONAL GAMMOPATHY
  5. RITUXIMAB. [Suspect]
     Active Substance: RITUXIMAB
     Indication: MONOCLONAL GAMMOPATHY
  6. DEXAMETHASONE. [Suspect]
     Active Substance: DEXAMETHASONE
     Indication: MONOCLONAL GAMMOPATHY

REACTIONS (1)
  - Drug ineffective [Unknown]
